FAERS Safety Report 4666735-0 (Version None)
Quarter: 2005Q2

REPORT INFORMATION
  Report Type: 
  Country: None (occurrence: None)
  Receive Date: 20050519
  Receipt Date: 20040329
  Transmission Date: 20051028
  Serious: Yes (Other)
  Sender: FDA-Public Use
  Company Number: PHEH2004US03578

PATIENT
  Age: 67 Year
  Sex: Male
  Weight: 79 kg

DRUGS (6)
  1. ZOMETA [Suspect]
     Indication: MULTIPLE MYELOMA
     Dosage: 4 MG, QMO
     Dates: start: 20020101
  2. AREDIA [Suspect]
     Indication: MULTIPLE MYELOMA
     Dosage: 90 MG, QMO
     Dates: start: 19980101, end: 20020101
  3. TOPROL-XL [Concomitant]
  4. FLOMAX [Concomitant]
  5. ELINASE [Concomitant]
  6. PREDNISONE TAB [Concomitant]

REACTIONS (4)
  - ASEPTIC NECROSIS BONE [None]
  - BONE DISORDER [None]
  - PAIN [None]
  - WOUND DRAINAGE [None]
